FAERS Safety Report 11554695 (Version 1)
Quarter: 2015Q3

REPORT INFORMATION
  Report Type: Spontaneous
  Country: US (occurrence: US)
  Receive Date: 20150925
  Receipt Date: 20150925
  Transmission Date: 20151125
  Serious: Yes (Life-Threatening, Hospitalization, Other)
  Sender: FDA-Public Use
  Company Number: US-EGALET US INC-US-2015EGA000516

PATIENT

DRUGS (11)
  1. LORAZEPAM. [Suspect]
     Active Substance: LORAZEPAM
     Indication: ANXIETY
     Dosage: 1 MG, UNK
  2. HALOPERIDOL. [Suspect]
     Active Substance: HALOPERIDOL
     Indication: INCOHERENT
  3. BUPRENORPHINE W/NALOXONE [Concomitant]
     Active Substance: BUPRENORPHINE HYDROCHLORIDE\NALOXONE HYDROCHLORIDE
     Indication: DRUG WITHDRAWAL SYNDROME
  4. HALOPERIDOL. [Suspect]
     Active Substance: HALOPERIDOL
     Indication: CONFUSIONAL STATE
     Dosage: 5 MG, ONCE
     Route: 042
  5. MARIJUANA [Concomitant]
     Active Substance: CANNABIS SATIVA SUBSP. INDICA TOP
     Indication: PRODUCT USED FOR UNKNOWN INDICATION
     Dosage: 3 TIMES PER WEEK SINCE AGE 16
  6. OXYCODONE HYDROCHLORIDE. [Suspect]
     Active Substance: OXYCODONE HYDROCHLORIDE
     Indication: SUBSTANCE USE
     Dosage: UNK, OCCASIONALLY
  7. HALOPERIDOL. [Suspect]
     Active Substance: HALOPERIDOL
     Indication: AKATHISIA
  8. BUPRENORPHINE W/NALOXONE [Concomitant]
     Active Substance: BUPRENORPHINE HYDROCHLORIDE\NALOXONE HYDROCHLORIDE
     Indication: DETOXIFICATION
     Dosage: 1/4 OF THE 8MG/2MG STRIP
     Route: 060
  9. OXYCODONE HYDROCHLORIDE. [Suspect]
     Active Substance: OXYCODONE HYDROCHLORIDE
     Dosage: 60 MG, DAILY
  10. OXYMORPHONE [Suspect]
     Active Substance: OXYMORPHONE
     Indication: SUBSTANCE USE
     Dosage: 10 MG, DAILY
  11. HEROIN [Suspect]
     Active Substance: DIACETYLMORPHINE
     Indication: SUBSTANCE USE
     Dosage: UNK
     Route: 045

REACTIONS (39)
  - Drug withdrawal syndrome [Recovered/Resolved]
  - Hyperhidrosis [Recovered/Resolved]
  - Diarrhoea [Recovered/Resolved]
  - Hallucination, auditory [Unknown]
  - Rhabdomyolysis [Unknown]
  - Piloerection [Recovered/Resolved]
  - Agitation [Recovered/Resolved]
  - Confusional state [Recovered/Resolved]
  - Drug dependence [Unknown]
  - Somnolence [Unknown]
  - Blood creatine phosphokinase increased [Unknown]
  - Nausea [Recovered/Resolved]
  - Musculoskeletal stiffness [Recovered/Resolved]
  - Akathisia [Recovering/Resolving]
  - Mucous membrane disorder [Unknown]
  - Crepitations [Unknown]
  - Drug screen positive [Unknown]
  - Delirium [Recovered/Resolved]
  - Pneumomediastinum [Unknown]
  - Acute kidney injury [Unknown]
  - Incoherent [Recovered/Resolved]
  - Flushing [Recovered/Resolved]
  - Muscle spasms [Recovered/Resolved]
  - Anxiety [Recovered/Resolved]
  - Memory impairment [Unknown]
  - Hallucination [Unknown]
  - Dystonia [Recovering/Resolving]
  - Feeling hot [Unknown]
  - Oesophageal rupture [Recovered/Resolved]
  - Dyspnoea [Recovered/Resolved]
  - Dyskinesia [Recovering/Resolving]
  - Hallucination, visual [Unknown]
  - Pharyngeal oedema [Recovered/Resolved]
  - Computerised tomogram abnormal [Unknown]
  - Chills [Recovered/Resolved]
  - Vomiting [Recovered/Resolved]
  - Disorientation [Recovered/Resolved]
  - Constricted affect [Unknown]
  - Refusal of treatment by patient [Unknown]
